FAERS Safety Report 9492474 (Version 2)
Quarter: 2013Q3

REPORT INFORMATION
  Report Type: Spontaneous
  Country: US (occurrence: US)
  Receive Date: 20130830
  Receipt Date: 20130923
  Transmission Date: 20140515
  Serious: Yes (Other)
  Sender: FDA-Public Use
  Company Number: US-TEVA-429315USA

PATIENT
  Age: 28 Year
  Sex: Female
  Weight: 77.63 kg

DRUGS (3)
  1. PARAGARD 380A [Suspect]
     Indication: CONTRACEPTION
     Route: 015
     Dates: start: 20130828, end: 20130828
  2. PRENATAL VITAMINS [Concomitant]
     Indication: MEDICAL DIET
  3. KEFLEX [Concomitant]

REACTIONS (2)
  - Uterine perforation [Recovered/Resolved]
  - Uterine spasm [Unknown]
